FAERS Safety Report 17696084 (Version 5)
Quarter: 2020Q4

REPORT INFORMATION
  Report Type: Other
  Country: US (occurrence: US)
  Receive Date: 20200422
  Receipt Date: 20201221
  Transmission Date: 20210113
  Serious: Yes (Hospitalization)
  Sender: FDA-Public Use
  Company Number: US-ROCHE-2586103

PATIENT
  Sex: Male

DRUGS (14)
  1. PULMOZYME [Suspect]
     Active Substance: DORNASE ALFA
     Indication: HYPOXIA
     Dosage: NEBULISE THE CONTENTS OF 1 2.5 MILLIGRAM VIAL
     Route: 065
  2. ONFI [Concomitant]
     Active Substance: CLOBAZAM
  3. PULMICORT TURBUHALER [Concomitant]
     Active Substance: BUDESONIDE
  4. KEPPRA [Concomitant]
     Active Substance: LEVETIRACETAM
  5. LANSOPRAZOLE. [Concomitant]
     Active Substance: LANSOPRAZOLE
  6. EPIDIOLEX [Concomitant]
     Active Substance: CANNABIDIOL
  7. PULMOZYME [Suspect]
     Active Substance: DORNASE ALFA
     Dosage: 1 MG/ML
     Route: 055
  8. IPRATROPIUM [Concomitant]
     Active Substance: IPRATROPIUM
  9. INSULIN [Concomitant]
     Active Substance: INSULIN NOS
  10. ACETYLCYSTEINE. [Concomitant]
     Active Substance: ACETYLCYSTEINE
  11. PULMOZYME [Suspect]
     Active Substance: DORNASE ALFA
     Indication: LENNOX-GASTAUT SYNDROME
     Dosage: NEBULISE THE CONTENTS OF 12.5 MG VIAL
     Route: 065
  12. DIAZEPAM. [Concomitant]
     Active Substance: DIAZEPAM
  13. ALBUTEROL. [Concomitant]
     Active Substance: ALBUTEROL
  14. FLONASE [Concomitant]
     Active Substance: FLUTICASONE PROPIONATE

REACTIONS (4)
  - Seizure [Unknown]
  - Pneumonia aspiration [Unknown]
  - Off label use [Unknown]
  - Intentional product use issue [Unknown]
